FAERS Safety Report 7594936-0 (Version None)
Quarter: 2011Q2

REPORT INFORMATION
  Report Type: 
  Country: None (occurrence: None)
  Receive Date: 20110616
  Receipt Date: 20110201
  Transmission Date: 20111010
  Serious: Yes (Hospitalization, Other)
  Sender: FDA-Public Use
  Company Number: 112372

PATIENT
  Age: 80 Year
  Sex: Female

DRUGS (1)
  1. DEFEROXAMINE MESYLATE [Suspect]
     Dosage: 2 GM, IV
     Route: 042
     Dates: start: 20110131

REACTIONS (1)
  - RESPIRATORY DISORDER [None]
